FAERS Safety Report 9648767 (Version 1)
Quarter: 2013Q4

REPORT INFORMATION
  Report Type: Spontaneous
  Country: US (occurrence: None)
  Receive Date: 20131025
  Receipt Date: 20131025
  Transmission Date: 20140711
  Serious: Yes (Hospitalization)
  Sender: FDA-Public Use
  Company Number: None

PATIENT
  Age: 55 Year
  Sex: Female
  Weight: 70.76 kg

DRUGS (1)
  1. VARENICLINE [Suspect]
     Indication: SMOKING CESSATION THERAPY
     Dosage: 10/09/2013 TO 10/17/2013, ONE PILL BID, ORAL.

REACTIONS (4)
  - Psychotic disorder [None]
  - Paranoia [None]
  - Suicidal ideation [None]
  - Emotional disorder [None]
